FAERS Safety Report 11132446 (Version 2)
Quarter: 2015Q2

REPORT INFORMATION
  Report Type: Report from Study
  Country: JP (occurrence: JP)
  Receive Date: 20150522
  Receipt Date: 20150625
  Transmission Date: 20150821
  Serious: Yes (Death, Hospitalization)
  Sender: FDA-Public Use
  Company Number: JP-HORIZON-BUP-0002-2015

PATIENT
  Age: 2 Year
  Sex: Male
  Weight: 14.3 kg

DRUGS (1)
  1. BUPHENYL [Suspect]
     Active Substance: SODIUM PHENYLBUTYRATE
     Indication: ORNITHINE TRANSCARBAMOYLASE DEFICIENCY
     Dosage: 3.5 G, QD
     Route: 048
     Dates: start: 20130613, end: 20141017

REACTIONS (2)
  - Hyperammonaemia [Fatal]
  - Multi-organ failure [Fatal]

NARRATIVE: CASE EVENT DATE: 20141015
